FAERS Safety Report 4589727-9 (Version None)
Quarter: 2005Q1

REPORT INFORMATION
  Report Type: 
  Country: None (occurrence: None)
  Receive Date: 20050217
  Receipt Date: 20050204
  Transmission Date: 20050727
  Serious: Yes (Death, Life-Threatening, Hospitalization, Other)
  Sender: FDA-Public Use
  Company Number: 2005018227

PATIENT
  Age: 84 Year
  Sex: Male

DRUGS (3)
  1. CELEBRA (CELECOXIB) [Suspect]
     Indication: LIMB INJURY
     Dosage: 200 MG (1 IN 1 D), ORAL
     Route: 048
     Dates: start: 20041223, end: 20041226
  2. GLIMEPIRIDE [Concomitant]
  3. ACETAMINOPHEN [Concomitant]

REACTIONS (11)
  - AMPUTATION [None]
  - ANAEMIA [None]
  - C-REACTIVE PROTEIN INCREASED [None]
  - CEREBROVASCULAR ACCIDENT [None]
  - DEHYDRATION [None]
  - FLUID INTAKE REDUCED [None]
  - GANGRENE [None]
  - GASTROINTESTINAL HAEMORRHAGE [None]
  - INFECTION [None]
  - PAIN [None]
  - RENAL FAILURE ACUTE [None]
